FAERS Safety Report 15776561 (Version 2)
Quarter: 2019Q1

REPORT INFORMATION
  Report Type: Spontaneous
  Country: US (occurrence: US)
  Receive Date: 20181231
  Receipt Date: 20190102
  Transmission Date: 20190417
  Serious: No
  Sender: FDA-Public Use
  Company Number: US-PFIZER INC-2016568608

PATIENT
  Age: 53 Year
  Sex: Female
  Weight: 77.11 kg

DRUGS (24)
  1. HYDRODIURIL [Concomitant]
     Active Substance: HYDROCHLOROTHIAZIDE
     Dosage: 25 MG, DAILY
     Route: 048
  2. NEXIUM 24HR [Concomitant]
     Active Substance: ESOMEPRAZOLE MAGNESIUM
     Dosage: 40 MG, 2X/DAY
     Route: 048
  3. LYRICA [Suspect]
     Active Substance: PREGABALIN
     Indication: FIBROMYALGIA
     Dosage: 300 MG, 2X/DAY
     Route: 048
  4. LYRICA [Suspect]
     Active Substance: PREGABALIN
     Indication: NEURALGIA
  5. NORCO [Concomitant]
     Active Substance: ACETAMINOPHEN\HYDROCODONE BITARTRATE
     Dosage: 1 DF, AS NEEDED
     Route: 048
  6. VENTOLIN HFA [Concomitant]
     Active Substance: ALBUTEROL SULFATE
     Dosage: UNK , AS NEEDED (INHALE 2 PUFFS INTO THE LUNGS EVERY 4 HOURS AS NEEDED)
     Route: 055
  7. ADVAIR HFA [Concomitant]
     Active Substance: FLUTICASONE PROPIONATE\SALMETEROL XINAFOATE
     Dosage: UNK, 2X/DAY (INHALE 1 PUFF INTO THE LUNGS EVERY 12 HOURS)
     Route: 055
  8. ZANTAC [Concomitant]
     Active Substance: RANITIDINE HYDROCHLORIDE
     Dosage: 150 MG, 2X/DAY
     Route: 048
  9. ASPIRIN 81 [Concomitant]
     Active Substance: ASPIRIN
     Dosage: 81 MG, DAILY
     Route: 048
  10. DURAGESIC [Concomitant]
     Active Substance: FENTANYL
     Dosage: UNK (PLACE 1 PATCH ONTO THE SKIN EVERY 72 HOURS)
     Route: 061
  11. LIPITOR [Concomitant]
     Active Substance: ATORVASTATIN CALCIUM
     Dosage: 40 MG, DAILY
     Route: 048
  12. PROVENTIL HFA [Concomitant]
     Active Substance: ALBUTEROL SULFATE
     Dosage: 2 DF, AS NEEDED, (INHALE 2 PUFFS INTO THE LUNGS EVERY 4 HOURS AS NEEDED)
     Route: 055
  13. ZANAFLEX [Concomitant]
     Active Substance: TIZANIDINE HYDROCHLORIDE
     Dosage: 12 MG, AS NEEDED, (TAKE 2 TABLETS BY MOUTH AT BEDTIME AND TAKE 1 TABLET BY MOUTH DAILY AS NEEDED))
     Route: 048
  14. FENTANYL. [Concomitant]
     Active Substance: FENTANYL
     Dosage: 25 MCG PER HOUR
  15. LYRICA [Suspect]
     Active Substance: PREGABALIN
     Indication: NEUROPATHY PERIPHERAL
  16. ABILIFY [Concomitant]
     Active Substance: ARIPIPRAZOLE
     Dosage: 5 MG, 1X/DAY (AT BEDTIME)
     Route: 048
  17. VISTARIL [Concomitant]
     Active Substance: HYDROXYZINE PAMOATE
     Dosage: 50 MG, AS NEEDED (TAKE 1 CAPSULE BY MOUTH DAILY)
     Route: 048
  18. SINEQUAN [Concomitant]
     Active Substance: DOXEPIN HYDROCHLORIDE
     Dosage: 100 MG, DAILY
     Route: 048
  19. DITROPAN [Concomitant]
     Active Substance: OXYBUTYNIN CHLORIDE
     Dosage: 5 MG, 2X/DAY
     Route: 048
  20. EFFEXOR XR [Concomitant]
     Active Substance: VENLAFAXINE HYDROCHLORIDE
     Dosage: 150 MG, DAILY
     Route: 048
  21. REGLAN [Concomitant]
     Active Substance: METOCLOPRAMIDE HYDROCHLORIDE
     Dosage: 10 MG, DAILY
     Route: 048
  22. TOVIAZ [Concomitant]
     Active Substance: FESOTERODINE FUMARATE
     Dosage: 4 MG, DAILY
     Route: 048
  23. FENTANYL. [Concomitant]
     Active Substance: FENTANYL
     Dosage: 12 MCG PER HOUR
  24. ESTRACE [Concomitant]
     Active Substance: ESTRADIOL
     Dosage: 1 MG, DAILY
     Route: 048

REACTIONS (8)
  - Influenza like illness [Unknown]
  - Feeling cold [Unknown]
  - Asthenia [Unknown]
  - Body temperature abnormal [Unknown]
  - Hyperhidrosis [Unknown]
  - Tremor [Unknown]
  - Withdrawal syndrome [Not Recovered/Not Resolved]
  - Nausea [Unknown]
